FAERS Safety Report 11329656 (Version 1)
Quarter: 2015Q3

REPORT INFORMATION
  Report Type: Spontaneous
  Country: US (occurrence: None)
  Receive Date: 20150730
  Receipt Date: 20150730
  Transmission Date: 20151125
  Serious: No
  Sender: FDA-Public Use
  Company Number: None

PATIENT
  Age: 58 Year
  Sex: Male

DRUGS (18)
  1. CASPOFUNGIN [Concomitant]
     Active Substance: CASPOFUNGIN
  2. EPINEPHRINE. [Concomitant]
     Active Substance: EPINEPHRINE
  3. MEROPENEM. [Concomitant]
     Active Substance: MEROPENEM
  4. BACITRACIN. [Concomitant]
     Active Substance: BACITRACIN
  5. INSULIN [Concomitant]
     Active Substance: INSULIN NOS
  6. FENTANYL. [Concomitant]
     Active Substance: FENTANYL
  7. FUROSEMIDE. [Concomitant]
     Active Substance: FUROSEMIDE
  8. PROPOFOL. [Suspect]
     Active Substance: PROPOFOL
     Indication: SEDATIVE THERAPY
     Dosage: 25 MCG/KG/MIN, CONTINUOUS, IV
     Route: 042
     Dates: start: 20150204, end: 20150205
  9. ASPIRIN. [Concomitant]
     Active Substance: ASPIRIN
  10. VANCOMYCIN [Concomitant]
     Active Substance: VANCOMYCIN
  11. HEPARIN [Concomitant]
     Active Substance: HEPARIN SODIUM
  12. HYDROMORPHINE [Concomitant]
     Active Substance: HYDROMORPHONE
  13. PRASUGREL [Concomitant]
     Active Substance: PRASUGREL
  14. PSYLLIUM [Concomitant]
     Active Substance: PLANTAGO SEED
  15. DOCUSATE [Concomitant]
     Active Substance: DOCUSATE
  16. LIDOCAINE. [Concomitant]
     Active Substance: LIDOCAINE
  17. RANITIDINE [Concomitant]
     Active Substance: RANITIDINE\RANITIDINE HYDROCHLORIDE
  18. SENNA [Concomitant]
     Active Substance: SENNA LEAF\SENNOSIDES\SENNOSIDES A AND B

REACTIONS (1)
  - Bradycardia [None]

NARRATIVE: CASE EVENT DATE: 20150205
